FAERS Safety Report 4741106-7 (Version None)
Quarter: 2005Q3

REPORT INFORMATION
  Report Type: 
  Country: None (occurrence: None)
  Receive Date: 20050803
  Receipt Date: 20041015
  Transmission Date: 20060218
  Serious: Yes (Hospitalization, Other)
  Sender: FDA-Public Use
  Company Number: 2004-10-0961

PATIENT
  Age: 59 Year
  Sex: Female
  Weight: 79.3795 kg

DRUGS (8)
  1. INTRON A [Suspect]
     Indication: CHRONIC MYELOID LEUKAEMIA
     Dosage: 9 MIU 4XWK SUBCUTANEOUS;  18 MIU BIW SUBCUTANEOUS
     Route: 058
     Dates: start: 19911001
  2. INTRON A [Suspect]
     Indication: CHRONIC MYELOID LEUKAEMIA
     Dosage: 9 MIU 4XWK SUBCUTANEOUS;  18 MIU BIW SUBCUTANEOUS
     Route: 058
     Dates: start: 19960401
  3. ACCOLATE [Concomitant]
  4. ALLEGRA-D (FEXOFEANDINE/PSEUDOEPHEDRINE) [Concomitant]
  5. TIOTROPIUM BROMIDE [Concomitant]
  6. SYNTHROID [Concomitant]
  7. INTAL [Concomitant]
  8. ADVAIR (SALMETEROL/FLUTICASONE) [Concomitant]

REACTIONS (4)
  - BONE PAIN [None]
  - CHILLS [None]
  - HEADACHE [None]
  - INJECTION SITE ABSCESS [None]
